FAERS Safety Report 25299220 (Version 1)
Quarter: 2025Q2

REPORT INFORMATION
  Report Type: Spontaneous
  Country: GB (occurrence: GB)
  Receive Date: 20250512
  Receipt Date: 20250512
  Transmission Date: 20250717
  Serious: Yes (Disabling, Other)
  Sender: AUROBINDO
  Company Number: GB-MHRA-WEBRADR-202504280706182950-JLFPV

PATIENT
  Age: 36 Year
  Sex: Female
  Weight: 44 kg

DRUGS (1)
  1. TRAZODONE [Suspect]
     Active Substance: TRAZODONE HYDROCHLORIDE
     Indication: Anxiety disorder
     Route: 065
     Dates: start: 20240224, end: 20250427

REACTIONS (3)
  - Muscular weakness [Not Recovered/Not Resolved]
  - Illness [Not Recovered/Not Resolved]
  - Headache [Not Recovered/Not Resolved]

NARRATIVE: CASE EVENT DATE: 20250427
